FAERS Safety Report 13798615 (Version 1)
Quarter: 2017Q3

REPORT INFORMATION
  Report Type: Spontaneous
  Country: US (occurrence: US)
  Receive Date: 20170727
  Receipt Date: 20170727
  Transmission Date: 20171127
  Serious: No
  Sender: FDA-Public Use
  Company Number: US-ELI_LILLY_AND_COMPANY-US201707009494

PATIENT
  Sex: Male

DRUGS (1)
  1. BASAGLAR [Suspect]
     Active Substance: INSULIN GLARGINE
     Indication: TYPE 2 DIABETES MELLITUS
     Dosage: 5 IU, EACH EVENING
     Dates: start: 20170718

REACTIONS (3)
  - Malaise [Not Recovered/Not Resolved]
  - Blood glucose increased [Unknown]
  - Blood pressure decreased [Not Recovered/Not Resolved]
